FAERS Safety Report 21079789 (Version 2)
Quarter: 2022Q3

REPORT INFORMATION
  Report Type: Report from Study
  Country: FR (occurrence: FR)
  Receive Date: 20220714
  Receipt Date: 20220816
  Transmission Date: 20221027
  Serious: Yes (Hospitalization, Other)
  Sender: FDA-Public Use
  Company Number: FR-BRISTOL-MYERS SQUIBB COMPANY-2022-041543

PATIENT
  Sex: Female
  Weight: 49.4 kg

DRUGS (5)
  1. NIVOLUMAB [Suspect]
     Active Substance: NIVOLUMAB
     Indication: Squamous cell carcinoma of head and neck
     Dosage: CUMULATIVE DOSE SINCE FIRST ADMINISTRATION WAS 600 MG.?EVNET CYCLE NUMBER WAS 01+01
     Route: 042
     Dates: start: 20220412, end: 20220426
  2. NIVOLUMAB [Suspect]
     Active Substance: NIVOLUMAB
     Route: 065
     Dates: start: 20220427
  3. CISPLATIN [Suspect]
     Active Substance: CISPLATIN
     Indication: Squamous cell carcinoma of head and neck
     Dosage: EVENT CYCLE NUMBER WAS 01
     Route: 042
     Dates: start: 20220426, end: 20220524
  4. CISPLATIN [Suspect]
     Active Substance: CISPLATIN
     Route: 065
     Dates: start: 20220427
  5. PEGFILGRASTIM [Concomitant]
     Active Substance: PEGFILGRASTIM
     Indication: Squamous cell carcinoma of head and neck
     Route: 065

REACTIONS (3)
  - Febrile neutropenia [Recovering/Resolving]
  - Stomatitis [Recovering/Resolving]
  - General physical health deterioration [Recovered/Resolved]

NARRATIVE: CASE EVENT DATE: 20220512
